FAERS Safety Report 9221500 (Version 1)
Quarter: 2013Q1

REPORT INFORMATION
  Report Type: Spontaneous
  Country: US (occurrence: None)
  Receive Date: 20120831
  Receipt Date: 20120831
  Transmission Date: 20140127
  Serious: No
  Sender: FDA-Public Use
  Company Number: 1000029706

PATIENT
  Age: 72 Year
  Sex: Female

DRUGS (10)
  1. DALIRESP [Suspect]
     Indication: CHRONIC OBSTRUCTIVE PULMONARY DISEASE
     Route: 048
     Dates: start: 201203
  2. PREDNISONE (PREDNISONE)(PREDNISONE) [Concomitant]
  3. BYSTOLIC (NEBIVOLOL HYDROCHLORIDE) (NEBIVOLOL HYDROCHLORIDE) [Concomitant]
  4. DILTIAZEM (DILTIAZEM HYDROCHLORIDE) (DILTIAZEM HYDROCHLORIDE) [Concomitant]
  5. LOSARTAN (LOSARTAN) (LOSARTAN) [Concomitant]
  6. WARFARIN (WARFARIN) (WARFARIN) [Concomitant]
  7. LEXAPRO (ESCITALOPRAM OXALATE) (ESCITALOPRAM OXALATE) [Concomitant]
  8. ALBUTEROL (ALBUTEROL) (ALBUTEROL) [Concomitant]
  9. SYMBICORT (BUDESONIDE W/FORMOTEROL FUMARATE) (BUDESONIDE WFORMOTEROL FUMARATE) [Concomitant]
  10. SPIRIVA (TIOTROPIUM BROMIDE)  (TIOTROPIUM BROMIDE) [Concomitant]

REACTIONS (4)
  - Diarrhoea [None]
  - Nausea [None]
  - Decreased appetite [None]
  - Insomnia [None]
